FAERS Safety Report 4292644-5 (Version None)
Quarter: 2004Q1

REPORT INFORMATION
  Report Type: 
  Country: None (occurrence: None)
  Receive Date: 20040211
  Receipt Date: 20040120
  Transmission Date: 20041129
  Serious: Yes (Life-Threatening, Hospitalization)
  Sender: FDA-Public Use
  Company Number: PHNR2004AU00493

PATIENT
  Age: 64 Year
  Sex: Male

DRUGS (4)
  1. ZOMETA [Suspect]
     Indication: PROSTATE CANCER
     Dosage: 4 MG, ONCE/SINGLE
     Route: 042
     Dates: start: 20031103, end: 20031103
  2. ZOMETA [Suspect]
     Dosage: 4 MG, ONCE/SINGLE
     Route: 042
     Dates: start: 20031202, end: 20031202
  3. DILTIAZEM [Concomitant]
  4. ASPIRIN [Concomitant]

REACTIONS (5)
  - BLOOD CREATININE INCREASED [None]
  - DIALYSIS [None]
  - PLASMAPHERESIS [None]
  - PLATELET COUNT DECREASED [None]
  - THROMBOTIC THROMBOCYTOPENIC PURPURA [None]
